FAERS Safety Report 6905317-4 (Version None)
Quarter: 2010Q3

REPORT INFORMATION
  Report Type: 
  Country: None (occurrence: None)
  Receive Date: 20100802
  Receipt Date: 20100719
  Transmission Date: 20110219
  Serious: Yes (Hospitalization)
  Sender: FDA-Public Use
  Company Number: UTC-001262

PATIENT
  Age: 51 Year
  Sex: Female
  Weight: 108.6 kg

DRUGS (12)
  1. REMODULIN [Suspect]
     Indication: PULMONARY ARTERIAL HYPERTENSION
     Dosage: 80.64 UG/KG (0.056 UG/KG, 1 IN 1 MIN), SUBCUTANEOUS
     Route: 058
     Dates: start: 20090423
  2. DARVOCET [Concomitant]
  3. LASIX [Concomitant]
  4. PREDNISONE [Concomitant]
  5. NORVASC [Concomitant]
  6. REVATIO [Concomitant]
  7. LEFLUNOMIDE [Concomitant]
  8. RANITIDINE [Concomitant]
  9. CLONIDINE [Concomitant]
  10. KLOR-CON [Concomitant]
  11. MAGNESIUM (MAGNESIUM) [Concomitant]
  12. ADCIRCA (TADALAFIL) [Concomitant]

REACTIONS (1)
  - DEEP VEIN THROMBOSIS [None]
